FAERS Safety Report 15341284 (Version 3)
Quarter: 2019Q1

REPORT INFORMATION
  Report Type: Report from Study
  Country: US (occurrence: US)
  Receive Date: 20180831
  Receipt Date: 20190225
  Transmission Date: 20190417
  Serious: Yes (Hospitalization)
  Sender: FDA-Public Use
  Company Number: US-ACTELION-A-NJ2017-162239

PATIENT
  Age: 16 Year
  Sex: Male

DRUGS (21)
  1. DIURIL [Concomitant]
     Active Substance: CHLOROTHIAZIDE
     Dosage: 250 MG, UNK
  2. CALCIUM CARBONATE. [Concomitant]
     Active Substance: CALCIUM CARBONATE
  3. FERROUS SULFATE. [Concomitant]
     Active Substance: FERROUS SULFATE
  4. MAGNESIUM OXIDE. [Concomitant]
     Active Substance: MAGNESIUM OXIDE
  5. ZANTAC [Concomitant]
     Active Substance: RANITIDINE HYDROCHLORIDE
  6. CALCIUM CHLORIDE. [Concomitant]
     Active Substance: CALCIUM CHLORIDE
  7. SYNTHROID [Concomitant]
     Active Substance: LEVOTHYROXINE SODIUM
     Dosage: 112 MCG, UNK
  8. FRESH FROZEN PLASMA [Concomitant]
     Active Substance: HUMAN PLASMA
  9. VITAMIN D3 [Concomitant]
     Active Substance: CHOLECALCIFEROL
  10. DULERA [Concomitant]
     Active Substance: FORMOTEROL FUMARATE DIHYDRATE\MOMETASONE FUROATE
     Dosage: 2 PUFF, BID
  11. SINGULAIR [Concomitant]
     Active Substance: MONTELUKAST SODIUM
     Dosage: 10 MG, UNK
  12. FLONASE [Concomitant]
     Active Substance: FLUTICASONE PROPIONATE
     Dosage: UNK, BID
  13. ADCIRCA [Concomitant]
     Active Substance: TADALAFIL
     Dosage: 20 MG, UNK
  14. ALDACTONE [Concomitant]
     Active Substance: SPIRONOLACTONE
     Dosage: 50 MG, BID
  15. BUMEX [Concomitant]
     Active Substance: BUMETANIDE
     Dosage: 0.5 MG, BID
  16. VITAMIN E [Concomitant]
     Active Substance: .ALPHA.-TOCOPHEROL
  17. CLARITIN [Concomitant]
     Active Substance: LORATADINE
     Dosage: UNK
  18. TRACLEER [Suspect]
     Active Substance: BOSENTAN
     Indication: PULMONARY ARTERIAL HYPERTENSION
     Dosage: 62.5 MG, BID
     Route: 048
     Dates: start: 20170614, end: 20190206
  19. ZITHROMAX [Concomitant]
     Active Substance: AZITHROMYCIN DIHYDRATE
     Dosage: 250 MG, UNK
  20. KCL [Concomitant]
     Active Substance: POTASSIUM CHLORIDE
  21. COUMADIN [Concomitant]
     Active Substance: WARFARIN SODIUM
     Dosage: 5 MG, UNK

REACTIONS (14)
  - Fluid overload [Not Recovered/Not Resolved]
  - Diarrhoea [Recovered/Resolved]
  - Bronchitis [Unknown]
  - Haematemesis [Recovered/Resolved]
  - Dyspepsia [Recovered/Resolved]
  - Protein-losing gastroenteropathy [Recovering/Resolving]
  - Weight increased [Recovered/Resolved]
  - Hospitalisation [Unknown]
  - Concomitant disease aggravated [Recovering/Resolving]
  - Oedema [Recovering/Resolving]
  - Product dose omission [Unknown]
  - Blood albumin decreased [Unknown]
  - Hypertension [Unknown]
  - Hypervolaemia [Recovering/Resolving]

NARRATIVE: CASE EVENT DATE: 20170905
